FAERS Safety Report 22695204 (Version 3)
Quarter: 2024Q1

REPORT INFORMATION
  Report Type: Other
  Country: GB (occurrence: None)
  Receive Date: 20230712
  Receipt Date: 20240129
  Transmission Date: 20240410
  Serious: No
  Sender: FDA-Public Use
  Company Number: GB-ROCHE-3385898

PATIENT
  Age: 43 Year
  Sex: Female

DRUGS (1)
  1. OCREVUS [Suspect]
     Active Substance: OCRELIZUMAB
     Indication: Relapsing-remitting multiple sclerosis
     Dosage: YES
     Route: 065

REACTIONS (7)
  - COVID-19 [Recovered/Resolved]
  - Muscular weakness [Not Recovered/Not Resolved]
  - Infection [Unknown]
  - Blister [Unknown]
  - Blister infected [Recovered/Resolved]
  - Uhthoff^s phenomenon [Recovered/Resolved]
  - Viral infection [Recovered/Resolved]

NARRATIVE: CASE EVENT DATE: 20230315
